FAERS Safety Report 9132802 (Version 4)
Quarter: 2013Q4

REPORT INFORMATION
  Report Type: Report from Study
  Country: BR (occurrence: BR)
  Receive Date: 20130301
  Receipt Date: 20131113
  Transmission Date: 20140711
  Serious: Yes (Other)
  Sender: FDA-Public Use
  Company Number: BR-ROCHE-1196759

PATIENT
  Sex: Female
  Weight: 50 kg

DRUGS (5)
  1. ACTEMRA [Suspect]
     Indication: RHEUMATOID ARTHRITIS
     Route: 065
     Dates: start: 20120914, end: 201302
  2. SYNTHROID [Concomitant]
     Route: 065
  3. OSTEONUTRI [Concomitant]
  4. BUCLINA [Concomitant]
     Route: 065
  5. CITONEURIN [Concomitant]

REACTIONS (2)
  - Weight decreased [Not Recovered/Not Resolved]
  - Rheumatoid arthritis [Recovering/Resolving]
